FAERS Safety Report 5324824-1 (Version None)
Quarter: 2007Q2

REPORT INFORMATION
  Report Type: 
  Country: None (occurrence: None)
  Receive Date: 20070515
  Receipt Date: 20070511
  Transmission Date: 20071010
  Serious: Yes (Death, Hospitalization, Other)
  Sender: FDA-Public Use
  Company Number: PHNU2007DE01780

PATIENT
  Sex: Female
  Weight: 48.1 kg

DRUGS (26)
  1. TEGRETOL [Suspect]
     Dosage: 200 MG/DAY
     Route: 048
  2. ARAC [Concomitant]
     Dosage: 200 MG/M2 /BID/CYCLE
     Dates: start: 20060901, end: 20061001
  3. ARAC [Concomitant]
     Dosage: 200 MG/M2 / BID/CYCLE
     Dates: start: 20061113, end: 20061113
  4. NOXAFIL [Suspect]
     Dosage: UNK, UNK
     Dates: start: 20061215, end: 20061220
  5. RITUXIMAB [Concomitant]
     Dosage: 375 MG/M2 / CYCLE
     Dates: start: 20060901, end: 20061001
  6. CISPLATIN [Concomitant]
     Dosage: 100 MG/M2 / CYCLE
     Dates: start: 20060901, end: 20061001
  7. DEXAMETHASONE 0.5MG TAB [Concomitant]
     Dosage: 40 MG D1-4 /CYCLE
     Dates: start: 20060901, end: 20061001
  8. CARMUSTINE [Concomitant]
     Dosage: 300 MG/M2 D-7
     Dates: start: 20061113, end: 20061113
  9. ETOPOSIDE [Concomitant]
     Dosage: 100 MG/M2 /BID/DAY
     Dates: start: 20061113, end: 20061113
  10. MELPHALAN [Concomitant]
     Dosage: 140 MG/M2 /DAY
     Dates: start: 20061113, end: 20061113
  11. LISKANTIN [Concomitant]
     Dosage: 250 MG/DAY
     Route: 048
  12. KALINOR RETARD [Concomitant]
     Dosage: 3000 MG/DAY
     Route: 048
  13. AMBISOME [Concomitant]
     Dosage: 150 MG/DAY
     Dates: start: 20061208, end: 20061215
  14. AMBISOME [Concomitant]
     Dosage: 100 MG/DAY
     Dates: start: 20061228, end: 20061230
  15. AMBISOME [Concomitant]
     Dosage: 50 MG/DAY
     Dates: start: 20061231, end: 20061231
  16. AMBISOME [Concomitant]
     Dosage: 70 MG/DAY
     Dates: start: 20070101, end: 20070101
  17. CANCIDAS [Concomitant]
     Dosage: 70 MG/DAY
     Dates: start: 20061223, end: 20061223
  18. CANCIDAS [Concomitant]
     Dosage: 50 MG/DAY
     Dates: start: 20061224, end: 20061226
  19. CANCIDAS [Concomitant]
     Dosage: 35 MG/DAY
     Dates: start: 20061227, end: 20061231
  20. DIFLUCAN [Concomitant]
     Dosage: 200 MG/DAY
     Route: 048
     Dates: start: 20061109, end: 20061201
  21. VFEND [Concomitant]
     Dosage: 400 MG/DAY
     Dates: start: 20061202, end: 20061207
  22. ACYCLOVIR [Concomitant]
     Dosage: 600 MG/DAY
     Route: 048
  23. CLEXANE [Concomitant]
  24. PALIFERMIN [Concomitant]
     Dosage: 3 MG/DAY
     Dates: start: 20061103, end: 20061105
  25. PALIFERMIN [Concomitant]
     Dosage: 3 MG/DAY
     Dates: start: 20061113, end: 20061115
  26. TAVANIC [Concomitant]
     Dosage: 1000 MG/DAY
     Route: 048
     Dates: start: 20061114, end: 20061222

REACTIONS (46)
  - ACUTE HEPATIC FAILURE [None]
  - ANTITHROMBIN III DECREASED [None]
  - ASPARTATE AMINOTRANSFERASE INCREASED [None]
  - ASTHENIA [None]
  - B-CELL LYMPHOMA STAGE III [None]
  - BLOOD BILIRUBIN INCREASED [None]
  - BLOOD LACTATE DEHYDROGENASE INCREASED [None]
  - BRONCHOPULMONARY ASPERGILLOSIS [None]
  - CHEMOTHERAPY [None]
  - CHEST X-RAY ABNORMAL [None]
  - CHILLS [None]
  - COLON POLYPECTOMY [None]
  - DIARRHOEA [None]
  - DISSEMINATED INTRAVASCULAR COAGULATION [None]
  - DISTURBANCE IN ATTENTION [None]
  - ENDOMETRIOSIS [None]
  - FATIGUE [None]
  - FUNGAL INFECTION [None]
  - GAMMA-GLUTAMYLTRANSFERASE INCREASED [None]
  - GENERAL PHYSICAL HEALTH DETERIORATION [None]
  - HAEMOLYSIS [None]
  - HAEMOPTYSIS [None]
  - HAPTOGLOBIN DECREASED [None]
  - HYPERSENSITIVITY [None]
  - INFECTION [None]
  - LAPAROSCOPIC STERILISATION [None]
  - LIVER FUNCTION TEST ABNORMAL [None]
  - METABOLIC DISORDER [None]
  - OSTEOARTHRITIS [None]
  - OSTEOPOROSIS [None]
  - PLEURAL EFFUSION [None]
  - PNEUMONIA [None]
  - POLYNEUROPATHY [None]
  - PROTHROMBIN TIME PROLONGED [None]
  - PRURITUS [None]
  - PYREXIA [None]
  - RASH [None]
  - SALPINGO-OOPHORECTOMY [None]
  - SEPSIS [None]
  - SOMNOLENCE [None]
  - STEM CELL TRANSPLANT [None]
  - T-CELL LYMPHOMA STAGE III [None]
  - THROMBOCYTOPENIA [None]
  - THYROIDECTOMY [None]
  - VARICOSE VEIN [None]
  - VENOUS STENT INSERTION [None]
